FAERS Safety Report 10638661 (Version 2)
Quarter: 2015Q3

REPORT INFORMATION
  Report Type: Report from Study
  Country: CA (occurrence: CA)
  Receive Date: 20141208
  Receipt Date: 20150820
  Transmission Date: 20151125
  Serious: Yes (Other)
  Sender: FDA-Public Use
  Company Number: CA-ABBVIE-14K-028-1317067-00

PATIENT
  Sex: Male

DRUGS (1)
  1. HUMIRA [Suspect]
     Active Substance: ADALIMUMAB
     Indication: CROHN^S DISEASE
     Route: 058
     Dates: start: 20140710

REACTIONS (4)
  - Fistula discharge [Not Recovered/Not Resolved]
  - Abdominal abscess [Recovering/Resolving]
  - Gastrointestinal fistula [Not Recovered/Not Resolved]
  - Haematochezia [Not Recovered/Not Resolved]
